FAERS Safety Report 9608486 (Version 2)
Quarter: 2013Q4

REPORT INFORMATION
  Report Type: Spontaneous
  Country: US (occurrence: US)
  Receive Date: 20131009
  Receipt Date: 20131111
  Transmission Date: 20140711
  Serious: Yes (Hospitalization)
  Sender: FDA-Public Use
  Company Number: US-B.I. PHARMACEUTICALS,INC./RIDGEFIELD-2013-BI-31454BP

PATIENT
  Age: 80 Year
  Sex: Female
  Weight: 105 kg

DRUGS (16)
  1. PRADAXA [Suspect]
     Indication: ATRIAL FIBRILLATION
     Dosage: 300 MG
     Route: 048
     Dates: start: 20120617, end: 20130916
  2. BABY ASPIRIN [Concomitant]
     Dosage: 81 MG
     Route: 048
  3. LISINOPRIL [Concomitant]
     Indication: HYPERTENSION
     Dosage: 10 MG
     Route: 048
  4. METOPROLOL [Concomitant]
     Indication: HYPERTENSION
     Dosage: 150 MG
     Route: 048
  5. METHOTREXATE [Concomitant]
     Indication: RHEUMATOID ARTHRITIS
     Dosage: 1.4286 MG
  6. METHOTREXATE [Concomitant]
     Indication: SJOGREN^S SYNDROME
  7. ASPIRIN [Concomitant]
     Indication: CORONARY ARTERY DISEASE
     Dosage: 81 MG
  8. TYLENOL [Concomitant]
     Indication: RHEUMATOID ARTHRITIS
  9. TYLENOL [Concomitant]
     Indication: SJOGREN^S SYNDROME
  10. TYLENOL [Concomitant]
     Indication: OSTEOARTHRITIS
  11. ICAP [Concomitant]
  12. CHOLECALCIFEROL [Concomitant]
  13. CYCLOSPORINE [Concomitant]
  14. VITAMIN D [Concomitant]
  15. FOLIC ACID [Concomitant]
  16. LEVOTHYROXIN [Concomitant]

REACTIONS (3)
  - Gastrointestinal haemorrhage [Recovered/Resolved]
  - Rectal haemorrhage [Not Recovered/Not Resolved]
  - Asthenia [Not Recovered/Not Resolved]
